FAERS Safety Report 8276597-0 (Version None)
Quarter: 2012Q2

REPORT INFORMATION
  Report Type: 
  Country: None (occurrence: None)
  Receive Date: 20120412
  Receipt Date: 20120402
  Transmission Date: 20120825
  Serious: Yes (Other)
  Sender: FDA-Public Use
  Company Number: GB-SANOFI-AVENTIS-2012SA023155

PATIENT
  Age: 26 Year
  Sex: Female
  Weight: 59 kg

DRUGS (4)
  1. FOLIC ACID [Concomitant]
  2. METHOTREXATE [Suspect]
     Route: 065
  3. GOLIMUMAB [Concomitant]
     Dosage: TWO DOSES
  4. HYDROXYCHLOROQUINE SULFATE [Suspect]
     Route: 065

REACTIONS (9)
  - HEPATIC CIRRHOSIS [None]
  - HYPOVOLAEMIC SHOCK [None]
  - PORTAL HYPERTENSION [None]
  - ANAEMIA [None]
  - OESOPHAGEAL VARICES HAEMORRHAGE [None]
  - HAEMATEMESIS [None]
  - ASCITES [None]
  - HEPATIC FUNCTION ABNORMAL [None]
  - ABDOMINAL PAIN [None]
